FAERS Safety Report 10926102 (Version 1)
Quarter: 2015Q1

REPORT INFORMATION
  Report Type: Spontaneous
  Country: US (occurrence: None)
  Receive Date: 20150316
  Receipt Date: 20150316
  Transmission Date: 20150721
  Serious: Yes (Hospitalization)
  Sender: FDA-Public Use
  Company Number: None

PATIENT
  Sex: Female

DRUGS (1)
  1. CEPHALEXIN. [Suspect]
     Active Substance: CEPHALEXIN
     Indication: INFECTION
     Dates: start: 20141222, end: 20150311

REACTIONS (3)
  - Product odour abnormal [None]
  - Skin ulcer [None]
  - Blister [None]

NARRATIVE: CASE EVENT DATE: 20150311
